FAERS Safety Report 5935259-2 (Version None)
Quarter: 2008Q4

REPORT INFORMATION
  Report Type: 
  Country: None (occurrence: None)
  Receive Date: 20081030
  Receipt Date: 20081019
  Transmission Date: 20090506
  Serious: Yes (Other)
  Sender: FDA-Public Use
  Company Number: US-SANOFI-SYNTHELABO-A03200804053

PATIENT
  Sex: Male

DRUGS (2)
  1. AMBIEN [Suspect]
     Indication: DRUG USE FOR UNKNOWN INDICATION
     Dosage: UNK
     Route: 048
     Dates: start: 20020101, end: 20080101
  2. AMBIEN [Suspect]
     Dosage: TOOK HALF OF 10 MG TABLET AT 11 PM
     Route: 048
     Dates: start: 20080101

REACTIONS (4)
  - IMPAIRED DRIVING ABILITY [None]
  - INTENTIONAL DRUG MISUSE [None]
  - ROAD TRAFFIC ACCIDENT [None]
  - SOMNAMBULISM [None]
